FAERS Safety Report 25725375 (Version 1)
Quarter: 2025Q3

REPORT INFORMATION
  Report Type: Report from Study
  Country: EU (occurrence: EU)
  Receive Date: 20250826
  Receipt Date: 20250826
  Transmission Date: 20251020
  Serious: Yes (Other)
  Sender: ROCHE
  Company Number: EU-ROCHE-10000369294

PATIENT

DRUGS (12)
  1. ATEZOLIZUMAB [Suspect]
     Active Substance: ATEZOLIZUMAB
     Indication: Sarcoma
     Route: 065
  2. NIVOLUMAB [Suspect]
     Active Substance: NIVOLUMAB
     Indication: Sarcoma
     Route: 065
  3. NELVUTAMIG [Suspect]
     Active Substance: NELVUTAMIG
     Indication: Sarcoma
     Route: 065
  4. PEMBROLIZUMAB [Suspect]
     Active Substance: PEMBROLIZUMAB
     Indication: Sarcoma
     Route: 065
  5. PAZOPANIB [Suspect]
     Active Substance: PAZOPANIB
     Indication: Sarcoma
     Route: 065
  6. ERIBULIN [Suspect]
     Active Substance: ERIBULIN
     Indication: Sarcoma
     Route: 065
  7. IFOSFAMIDE [Suspect]
     Active Substance: IFOSFAMIDE
     Indication: Sarcoma
     Route: 065
  8. DOCETAXEL [Suspect]
     Active Substance: DOCETAXEL
     Indication: Sarcoma
     Route: 065
  9. GEMCITABINE [Suspect]
     Active Substance: GEMCITABINE
     Indication: Sarcoma
     Route: 065
  10. AXITINIB [Suspect]
     Active Substance: AXITINIB
     Indication: Sarcoma
     Route: 065
  11. CABOZANTINIB [Suspect]
     Active Substance: CABOZANTINIB
     Indication: Sarcoma
     Route: 065
  12. SUNITINIB [Suspect]
     Active Substance: SUNITINIB
     Indication: Sarcoma
     Route: 065

REACTIONS (10)
  - Immune-mediated encephalitis [Unknown]
  - Adrenal insufficiency [Unknown]
  - Stomatitis [Unknown]
  - Colitis [Unknown]
  - Memory impairment [Unknown]
  - Diarrhoea [Unknown]
  - Cellulitis [Unknown]
  - Pneumonitis [Unknown]
  - Myositis [Unknown]
  - Off label use [Unknown]
